FAERS Safety Report 5028080-3 (Version None)
Quarter: 2006Q2

REPORT INFORMATION
  Report Type: 
  Country: None (occurrence: None)
  Receive Date: 20060613
  Receipt Date: 20060602
  Transmission Date: 20061013
  Serious: Yes (Other)
  Sender: FDA-Public Use
  Company Number: 200613924BWH

PATIENT
  Age: 50 Year
  Sex: Male
  Weight: 80.2867 kg

DRUGS (12)
  1. NEXAVAR [Suspect]
     Indication: RENAL CELL CARCINOMA STAGE UNSPECIFIED
     Dosage: 200MG, BID, ORAL
     Route: 048
     Dates: start: 20060523, end: 20060530
  2. CLONIDINE [Concomitant]
  3. CYMBALTA [Concomitant]
  4. BENADRYL [Concomitant]
  5. DOCUSATE [Concomitant]
  6. FENTANYL [Concomitant]
  7. LEXAPRO [Concomitant]
  8. LIPITOR [Concomitant]
  9. MEGESTROL [Concomitant]
  10. METOPROLOL TARTRATE [Concomitant]
  11. TRAZODONE HCL [Concomitant]
  12. ZYPREXA [Concomitant]

REACTIONS (1)
  - ANGIONEUROTIC OEDEMA [None]
